FAERS Safety Report 13905838 (Version 1)
Quarter: 2017Q3

REPORT INFORMATION
  Report Type: Spontaneous
  Country: US (occurrence: US)
  Receive Date: 20170825
  Receipt Date: 20170825
  Transmission Date: 20171127
  Serious: Yes (Other)
  Sender: FDA-Public Use
  Company Number: None

PATIENT
  Age: 74 Year
  Weight: 72 kg

DRUGS (9)
  1. CIALIS [Concomitant]
     Active Substance: TADALAFIL
  2. CPAP [Concomitant]
     Active Substance: DEVICE
  3. MULTI-VITAMIN [Concomitant]
     Active Substance: .ALPHA.-TOCOPHEROL ACETATE, DL-\ASCORBIC ACID\CYANOCOBALAMIN\FLUORIDE ION\FOLIC ACID\NIACIN\PYRIDOXINE\RIBOFLAVIN\THIAMINE\VITAMIN A\VITAMIN D
  4. VITAMIN D [Concomitant]
     Active Substance: CHOLECALCIFEROL
  5. ZOLPIDEM [Concomitant]
     Active Substance: ZOLPIDEM\ZOLPIDEM TARTRATE
  6. ASPIRIN. [Concomitant]
     Active Substance: ASPIRIN
  7. PROBIOTIC [Concomitant]
     Active Substance: PROBIOTICS NOS
  8. MAGNESIUM [Concomitant]
     Active Substance: MAGNESIUM
  9. KIRKLAND SIGNATURE ALLER FLO [Suspect]
     Active Substance: FLUTICASONE PROPIONATE
     Indication: SEASONAL ALLERGY
     Dosage: ?          QUANTITY:1 PUFF(S);?
     Route: 055
     Dates: start: 20170817, end: 20170824

REACTIONS (2)
  - Dysgeusia [None]
  - Product substitution issue [None]

NARRATIVE: CASE EVENT DATE: 20170824
